FAERS Safety Report 6633720-9 (Version None)
Quarter: 2010Q1

REPORT INFORMATION
  Report Type: 
  Country: None (occurrence: None)
  Receive Date: 20100315
  Receipt Date: 20100309
  Transmission Date: 20100710
  Serious: Yes (Hospitalization)
  Sender: FDA-Public Use
  Company Number: US-BIOGENIDEC-2010BI007485

PATIENT
  Age: 39 Year
  Sex: Female

DRUGS (2)
  1. TYSABRI [Suspect]
     Indication: MULTIPLE SCLEROSIS
     Route: 042
     Dates: start: 20070802, end: 20100112
  2. DEPAKOTE [Concomitant]

REACTIONS (4)
  - HEPATITIS [None]
  - NON-CARDIOGENIC PULMONARY OEDEMA [None]
  - PYREXIA [None]
  - RASH [None]
